FAERS Safety Report 12445777 (Version 1)
Quarter: 2016Q2

REPORT INFORMATION
  Report Type: Spontaneous
  Country: US (occurrence: US)
  Receive Date: 20160608
  Receipt Date: 20160608
  Transmission Date: 20160815
  Serious: No
  Sender: FDA-Public Use
  Company Number: US-JNJFOC-20160509522

PATIENT
  Age: 87 Year
  Sex: Male

DRUGS (2)
  1. TYLENOL EXTRA STRENGTH [Suspect]
     Active Substance: ACETAMINOPHEN
     Indication: BACK PAIN
     Dosage: DOSE: 1 DOSE FORMULATION, AS NEEDED EVERY 6 HOURS.
     Route: 048
  2. TYLENOL EXTRA STRENGTH [Suspect]
     Active Substance: ACETAMINOPHEN
     Indication: PAIN IN EXTREMITY
     Dosage: DOSE: 1 DOSE FORMULATION, AS NEEDED EVERY 6 HOURS.
     Route: 048

REACTIONS (2)
  - Off label use [Unknown]
  - Underdose [Unknown]
